FAERS Safety Report 9312321 (Version 1)
Quarter: 2013Q2

REPORT INFORMATION
  Report Type: Spontaneous
  Country: JP (occurrence: JP)
  Receive Date: 20130528
  Receipt Date: 20130528
  Transmission Date: 20140414
  Serious: Yes (Hospitalization)
  Sender: FDA-Public Use
  Company Number: JP-BAXTER-2013BAX019216

PATIENT
  Age: 60 Year
  Sex: Female

DRUGS (2)
  1. ENDOXAN TABLET (CYCLOPHOSPHAMIDE 50 MG) [Suspect]
     Indication: SCLERODERMA
     Route: 048
     Dates: start: 199606
  2. PREDONINE [Concomitant]
     Indication: SCLERODERMA
     Route: 048
     Dates: start: 199602

REACTIONS (4)
  - Myelodysplastic syndrome [Recovered/Resolved]
  - B-cell lymphoma [Recovered/Resolved]
  - Acute leukaemia [Recovered/Resolved]
  - Platelet count decreased [Recovered/Resolved]
